FAERS Safety Report 25956623 (Version 1)
Quarter: 2025Q4

REPORT INFORMATION
  Report Type: Report from Study
  Country: US (occurrence: US)
  Receive Date: 20251024
  Receipt Date: 20251024
  Transmission Date: 20260117
  Serious: Yes (Other)
  Sender: GILEAD
  Company Number: US-GILEAD-2025-0733232

PATIENT
  Sex: Female

DRUGS (1)
  1. AZTREONAM LYSINE [Suspect]
     Active Substance: AZTREONAM LYSINE
     Indication: Cystic fibrosis lung
     Dosage: INHALE 75 MG 3 TIMES DAILY FOR 28 DAYS EVERY OTHER MONTH
     Route: 055

REACTIONS (1)
  - Infective pulmonary exacerbation of cystic fibrosis [Unknown]
